FAERS Safety Report 5595722-3 (Version None)
Quarter: 2008Q1

REPORT INFORMATION
  Report Type: 
  Country: None (occurrence: None)
  Receive Date: 20080116
  Receipt Date: 20080107
  Transmission Date: 20080703
  Serious: Yes (Other)
  Sender: FDA-Public Use
  Company Number: S08-USA-00047-01

PATIENT
  Age: 33 Year
  Sex: Female

DRUGS (2)
  1. CELEXA [Suspect]
     Indication: MIGRAINE
  2. RELPAX [Suspect]
     Indication: MIGRAINE

REACTIONS (3)
  - HEAD INJURY [None]
  - MULTIPLE SCLEROSIS [None]
  - SYNCOPE [None]
